FAERS Safety Report 5957267-8 (Version None)
Quarter: 2008Q4

REPORT INFORMATION
  Report Type: 
  Country: None (occurrence: None)
  Receive Date: 20081118
  Receipt Date: 20081112
  Transmission Date: 20090506
  Serious: Yes (Other)
  Sender: FDA-Public Use
  Company Number: BE-ROXANE LABORATORIES, INC.-2008-RO-00220RO

PATIENT
  Age: 15 Year
  Sex: Male
  Weight: 42 kg

DRUGS (10)
  1. METHOTREXATE [Suspect]
     Indication: CHEMOTHERAPY
     Route: 042
  2. DEXAMETHASONE [Suspect]
     Indication: CHEMOTHERAPY
     Route: 048
  3. CYCLOPHOSPHAMIDE [Suspect]
     Indication: CHEMOTHERAPY
     Route: 042
  4. VINCRISTINE [Suspect]
     Indication: CHEMOTHERAPY
     Route: 042
  5. DAUNORUBICIN HCL [Suspect]
     Indication: CHEMOTHERAPY
     Route: 042
  6. TRIPLE CHEMOTHERAPY [Suspect]
     Indication: CHEMOTHERAPY
     Route: 037
  7. ELSPAR [Suspect]
     Indication: CHEMOTHERAPY
     Route: 042
  8. PREDNISOLONE [Suspect]
     Indication: CHEMOTHERAPY
  9. OMEPRAZOLE [Suspect]
     Indication: ABDOMINAL PAIN UPPER
     Dosage: 20MG
     Route: 048
  10. FOLINIC ACID [Concomitant]
     Indication: DRUG LEVEL INCREASED
     Route: 042

REACTIONS (5)
  - ABDOMINAL PAIN UPPER [None]
  - DRUG INTERACTION [None]
  - DRUG TOXICITY [None]
  - MUCOSAL INFLAMMATION [None]
  - THERAPEUTIC RESPONSE DECREASED [None]
